FAERS Safety Report 23108028 (Version 1)
Quarter: 2023Q4

REPORT INFORMATION
  Report Type: Spontaneous
  Country: US (occurrence: US)
  Receive Date: 20231026
  Receipt Date: 20231026
  Transmission Date: 20240110
  Serious: No
  Sender: FDA-Public Use
  Company Number: US-BRISTOL-MYERS SQUIBB COMPANY-2023-152140

PATIENT
  Age: 78 Year
  Sex: Female

DRUGS (5)
  1. POMALYST [Suspect]
     Active Substance: POMALIDOMIDE
     Indication: Plasma cell myeloma
     Dosage: FREQ-TAKE 1 CAPSULE BY MOUTH DAILY DAYS 1-21 EVERY 28 DAYS
     Route: 048
     Dates: start: 20230922
  2. POMALYST [Suspect]
     Active Substance: POMALIDOMIDE
     Dosage: FREQ-TAKE 1 CAPSULE BY MOUTH DAILY DAYS 1-21 EVERY 28 DAYS
     Route: 048
     Dates: start: 20230922
  3. POMALYST [Suspect]
     Active Substance: POMALIDOMIDE
     Dosage: FREQ-TAKE 1 CAPSULE BY MOUTH DAILY DAYS 1-21 EVERY 28 DAYS
     Route: 048
     Dates: start: 20230922, end: 202310
  4. ADVIL (MEFENAMIC ACID) [Concomitant]
     Active Substance: MEFENAMIC ACID
     Indication: Product used for unknown indication
  5. ASPIRIN [Concomitant]
     Active Substance: ASPIRIN
     Indication: Product used for unknown indication

REACTIONS (5)
  - Fatigue [Unknown]
  - Asthenia [Unknown]
  - Tremor [Unknown]
  - Disturbance in attention [Unknown]
  - Visual impairment [Unknown]
